FAERS Safety Report 23831339 (Version 1)
Quarter: 2024Q2

REPORT INFORMATION
  Report Type: Spontaneous
  Country: CA (occurrence: CA)
  Receive Date: 20240508
  Receipt Date: 20240508
  Transmission Date: 20240716
  Serious: Yes (Death, Other)
  Sender: FDA-Public Use
  Company Number: CA-PFIZER INC-202300318138

PATIENT
  Age: 65 Year
  Sex: Male

DRUGS (4)
  1. ABRILADA [Suspect]
     Active Substance: ADALIMUMAB-AFZB
     Indication: Crohn^s disease
     Dosage: EVERY OTHER WEEK
     Route: 058
     Dates: start: 20231105
  2. AZATHIOPRINE [Concomitant]
     Active Substance: AZATHIOPRINE
     Dosage: 1 DF
  3. CIPROFLOXACIN [Concomitant]
     Active Substance: CIPROFLOXACIN
     Dosage: 1 DF
  4. HUMIRA [Concomitant]
     Active Substance: ADALIMUMAB
     Dosage: 1 DF
     Dates: start: 2008

REACTIONS (3)
  - Pneumonia [Fatal]
  - Cardiac arrest [Fatal]
  - Off label use [Unknown]

NARRATIVE: CASE EVENT DATE: 20240209
